FAERS Safety Report 19909361 (Version 1)
Quarter: 2021Q4

REPORT INFORMATION
  Report Type: Spontaneous
  Country: US (occurrence: US)
  Receive Date: 20211001
  Receipt Date: 20211001
  Transmission Date: 20220303
  Serious: Yes (Other)
  Sender: FDA-Public Use
  Company Number: US-PFIZER INC-202101161578

PATIENT
  Age: 52 Year
  Sex: Female

DRUGS (1)
  1. XELJANZ [Suspect]
     Active Substance: TOFACITINIB CITRATE
     Indication: Rheumatoid arthritis
     Dosage: 5 MG, 2X/DAY(TWICE A DAY)
     Route: 048
     Dates: start: 20210731

REACTIONS (5)
  - Cataract [Unknown]
  - Tooth disorder [Unknown]
  - Swelling [Unknown]
  - Pain [Unknown]
  - Tooth abscess [Unknown]

NARRATIVE: CASE EVENT DATE: 20210101
